FAERS Safety Report 10199867 (Version 1)
Quarter: 2014Q2

REPORT INFORMATION
  Report Type: Spontaneous
  Country: US (occurrence: US)
  Receive Date: 20140527
  Receipt Date: 20140527
  Transmission Date: 20141212
  Serious: No
  Sender: FDA-Public Use
  Company Number: US-NOVEN-14US009014

PATIENT
  Age: 9 Year
  Sex: Male

DRUGS (4)
  1. DAYTRANA [Suspect]
     Dosage: 20 MG, UNK
     Route: 062
     Dates: start: 201402
  2. DAYTRANA [Suspect]
     Dosage: 10 MG, UNK
     Route: 062
     Dates: start: 201312, end: 201401
  3. DAYTRANA [Suspect]
     Dosage: 1/2 20MG, UNK
     Dates: start: 20140225, end: 20140225
  4. DESMOPRESSIN [Concomitant]
     Indication: ENURESIS
     Dosage: UNK
     Dates: start: 201309

REACTIONS (6)
  - Tinnitus [Not Recovered/Not Resolved]
  - Anger [Recovered/Resolved]
  - Hallucination, visual [Recovered/Resolved]
  - Drug ineffective [Recovered/Resolved]
  - Wrong technique in drug usage process [Not Recovered/Not Resolved]
  - Drug prescribing error [Not Recovered/Not Resolved]
